FAERS Safety Report 19363623 (Version 3)
Quarter: 2021Q3

REPORT INFORMATION
  Report Type: Spontaneous
  Country: IN (occurrence: IN)
  Receive Date: 20210603
  Receipt Date: 20210818
  Transmission Date: 20211014
  Serious: Yes (Other)
  Sender: FDA-Public Use
  Company Number: IN-SUN PHARMACEUTICAL INDUSTRIES LTD-2021R1-298762

PATIENT
  Sex: Male

DRUGS (2)
  1. LEVIPIL [Suspect]
     Active Substance: LEVETIRACETAM
     Indication: EPILEPSY
     Dosage: 400 MILLIGRAM, BID
     Route: 048
     Dates: start: 19920303
  2. LEVIPIL [Suspect]
     Active Substance: LEVETIRACETAM
     Dosage: 800 MILLIGRAM, DAILY
     Route: 065

REACTIONS (1)
  - Obsessive-compulsive symptom [Recovered/Resolved]
